FAERS Safety Report 16184635 (Version 1)
Quarter: 2019Q2

REPORT INFORMATION
  Report Type: Spontaneous
  Country: US (occurrence: US)
  Receive Date: 20190411
  Receipt Date: 20190411
  Transmission Date: 20190711
  Serious: No
  Sender: FDA-Public Use
  Company Number: US-009507513-1904USA003587

PATIENT
  Age: 40 Year
  Sex: Male

DRUGS (9)
  1. PIPERACILLIN AND TAZOBACTAM [Concomitant]
     Active Substance: PIPERACILLIN SODIUM\TAZOBACTAM SODIUM
  2. CEFTAROLINE FOSAMIL ACETATE [Concomitant]
     Active Substance: CEFTAROLINE FOSAMIL
  3. TELAVANCIN HYDROCHLORIDE [Concomitant]
     Active Substance: TELAVANCIN HYDROCHLORIDE
  4. CUBICIN [Suspect]
     Active Substance: DAPTOMYCIN
     Indication: BACTEROIDES INFECTION
  5. VANCOMYCIN [Concomitant]
     Active Substance: VANCOMYCIN
  6. RIFAMPIN. [Concomitant]
     Active Substance: RIFAMPIN
  7. CUBICIN [Suspect]
     Active Substance: DAPTOMYCIN
     Indication: STAPHYLOCOCCAL INFECTION
  8. NAFCILLIN SODIUM. [Concomitant]
     Active Substance: NAFCILLIN SODIUM
  9. METRONIDAZOLE. [Concomitant]
     Active Substance: METRONIDAZOLE

REACTIONS (1)
  - Product use in unapproved indication [Unknown]
